FAERS Safety Report 6896976-3 (Version None)
Quarter: 2010Q3

REPORT INFORMATION
  Report Type: 
  Country: None (occurrence: None)
  Receive Date: 20100802
  Receipt Date: 20070329
  Transmission Date: 20110219
  Serious: No
  Sender: FDA-Public Use
  Company Number: US-PFIZER INC-2007005649

PATIENT
  Sex: Male
  Weight: 64.86 kg

DRUGS (4)
  1. LYRICA [Suspect]
     Indication: NERVE INJURY
     Dates: end: 20060101
  2. PROVERA [Concomitant]
  3. TAMSULOSIN HYDROCHLORIDE [Concomitant]
  4. PREVACID [Concomitant]

REACTIONS (4)
  - DRUG INEFFECTIVE [None]
  - HYPOAESTHESIA [None]
  - MYALGIA [None]
  - PAIN [None]
